FAERS Safety Report 18454931 (Version 1)
Quarter: 2020Q4

REPORT INFORMATION
  Report Type: Report from Study
  Country: None (occurrence: CA)
  Receive Date: 20201103
  Receipt Date: 20201103
  Transmission Date: 20210114
  Serious: Yes (Other)
  Sender: FDA-Public Use
  Company Number: CA-ABBVIE-20K-028-3630518-00

PATIENT
  Sex: Male

DRUGS (2)
  1. PREDNISONE. [Suspect]
     Active Substance: PREDNISONE
     Indication: INFLUENZA
     Route: 065
     Dates: start: 202001, end: 2020
  2. SKYRIZI [Suspect]
     Active Substance: RISANKIZUMAB-RZAA
     Indication: PSORIASIS
     Route: 058
     Dates: start: 20191125

REACTIONS (8)
  - Visual impairment [Recovered/Resolved]
  - Eye infection [Not Recovered/Not Resolved]
  - Swelling of eyelid [Recovered/Resolved]
  - Eye disorder [Not Recovered/Not Resolved]
  - Eyelid margin crusting [Not Recovered/Not Resolved]
  - Influenza [Recovered/Resolved]
  - Visual impairment [Not Recovered/Not Resolved]
  - Eye discharge [Not Recovered/Not Resolved]

NARRATIVE: CASE EVENT DATE: 2020
